FAERS Safety Report 5621746-3 (Version None)
Quarter: 2008Q1

REPORT INFORMATION
  Report Type: 
  Country: None (occurrence: None)
  Receive Date: 20080211
  Receipt Date: 20080131
  Transmission Date: 20080703
  Serious: Yes (Other)
  Sender: FDA-Public Use
  Company Number: PHBS2008BR01625

PATIENT
  Sex: Female
  Weight: 53 kg

DRUGS (4)
  1. CATAFLAM [Suspect]
     Indication: PAIN
  2. PARACETAMOL [Suspect]
     Indication: TOOTHACHE
     Dosage: 500 MG, Q12H
     Route: 048
  3. AMOXICILLIN [Suspect]
     Route: 065
  4. PREXIGE [Suspect]
     Indication: OSTEITIS
     Dosage: 400 MG, Q12H
     Route: 048

REACTIONS (13)
  - ARTHRALGIA [None]
  - BURNING SENSATION [None]
  - FORMICATION [None]
  - HYPOAESTHESIA [None]
  - LIMB DISCOMFORT [None]
  - LIVER DISORDER [None]
  - MUSCULAR WEAKNESS [None]
  - PAIN [None]
  - PAIN IN EXTREMITY [None]
  - PERIPHERAL COLDNESS [None]
  - PYREXIA [None]
  - SENSATION OF HEAVINESS [None]
  - TEMPOROMANDIBULAR JOINT SYNDROME [None]
